FAERS Safety Report 12092476 (Version 4)
Quarter: 2017Q3

REPORT INFORMATION
  Report Type: Spontaneous
  Country: PL (occurrence: PL)
  Receive Date: 20160219
  Receipt Date: 20170904
  Transmission Date: 20171127
  Serious: Yes (Hospitalization, Other)
  Sender: FDA-Public Use
  Company Number: PL-ROCHE-1713283

PATIENT
  Age: 54 Year
  Sex: Male
  Weight: 77 kg

DRUGS (17)
  1. MABTHERA [Suspect]
     Active Substance: RITUXIMAB
     Indication: MANTLE CELL LYMPHOMA
     Dosage: 700 MG IN 500 ML NACL 0.9 %?2 THERAPY CYCLES
     Route: 042
     Dates: start: 20111104
  2. GAZYVARO [Suspect]
     Active Substance: OBINUTUZUMAB
     Indication: MANTLE CELL LYMPHOMA
     Route: 042
     Dates: start: 20151229, end: 20160126
  3. CISPLATIN. [Concomitant]
     Active Substance: CISPLATIN
     Indication: MANTLE CELL LYMPHOMA
     Route: 042
     Dates: start: 20160128, end: 20160128
  4. DEXAVEN [Concomitant]
     Active Substance: DEXAMETHASONE
     Route: 065
  5. NEBILET [Concomitant]
     Active Substance: NEBIVOLOL
     Route: 065
  6. ROMAZIC [Concomitant]
     Route: 065
  7. GLUCOPHAGE [Concomitant]
     Active Substance: METFORMIN HYDROCHLORIDE
     Route: 065
  8. INDIX [Concomitant]
     Active Substance: INDAPAMIDE
     Route: 065
  9. BENDAMUSTINE [Concomitant]
     Active Substance: BENDAMUSTINE
     Dosage: 175 MG IN 500 ML NACL 0.9 %
     Route: 065
     Dates: start: 20151105, end: 20151106
  10. DEXAMETHASONE. [Concomitant]
     Active Substance: DEXAMETHASONE
     Indication: MANTLE CELL LYMPHOMA
     Route: 042
     Dates: start: 20160128, end: 20160131
  11. MABTHERA [Suspect]
     Active Substance: RITUXIMAB
     Indication: B-CELL LYMPHOMA
     Dosage: 2 THERAPY CYCLES
     Route: 042
     Dates: start: 20151105, end: 20151202
  12. CLEMASTIN [Concomitant]
     Active Substance: CLEMASTINE
     Route: 065
  13. PARACETAMOL [Concomitant]
     Active Substance: ACETAMINOPHEN
     Route: 065
  14. ATOSSA [Concomitant]
     Route: 065
  15. MILURIT [Concomitant]
     Active Substance: ALLOPURINOL
     Route: 065
  16. CYTARABINE. [Concomitant]
     Active Substance: CYTARABINE
     Indication: MANTLE CELL LYMPHOMA
     Route: 042
     Dates: start: 20160129, end: 20160130
  17. BENDAMUSTINE [Concomitant]
     Active Substance: BENDAMUSTINE
     Indication: MANTLE CELL LYMPHOMA
     Route: 042
     Dates: start: 20151104, end: 201601

REACTIONS (5)
  - Renal failure [Unknown]
  - Serum sickness [Recovered/Resolved]
  - Serum sickness [Recovered/Resolved]
  - Off label use [Unknown]
  - Pancytopenia [Unknown]

NARRATIVE: CASE EVENT DATE: 20151118
